FAERS Safety Report 24327960 (Version 2)
Quarter: 2024Q3

REPORT INFORMATION
  Report Type: Spontaneous
  Country: RU (occurrence: RU)
  Receive Date: 20240917
  Receipt Date: 20240920
  Transmission Date: 20241016
  Serious: Yes (Death, Life-Threatening, Hospitalization, Disabling)
  Sender: PFIZER
  Company Number: RU-PFIZER INC-202400257840

PATIENT
  Age: 62 Year
  Sex: Male

DRUGS (1)
  1. LORLATINIB [Suspect]
     Active Substance: LORLATINIB
     Indication: Non-small cell lung cancer metastatic

REACTIONS (6)
  - Dizziness [Fatal]
  - Balance disorder [Fatal]
  - Headache [Fatal]
  - Hypertension [Fatal]
  - Memory impairment [Fatal]
  - Central nervous system necrosis [Fatal]
